FAERS Safety Report 7344656-2 (Version None)
Quarter: 2011Q1

REPORT INFORMATION
  Report Type: 
  Country: None (occurrence: None)
  Receive Date: 20110307
  Receipt Date: 20110307
  Transmission Date: 20110831
  Serious: Yes (Other)
  Sender: FDA-Public Use
  Company Number: None

PATIENT
  Sex: Female
  Weight: 62.1428 kg

DRUGS (1)
  1. SULFAMETHOXAZOLE AND TRIMETHOPRIM [Suspect]
     Indication: PAIN IN EXTREMITY
     Dosage: 1 TABLET 2 TIMES A DAY
     Dates: start: 20110220, end: 20110221

REACTIONS (4)
  - BODY TEMPERATURE DECREASED [None]
  - BLOOD GLUCOSE DECREASED [None]
  - FEELING COLD [None]
  - TREMOR [None]
